FAERS Safety Report 7980592-6 (Version None)
Quarter: 2011Q4

REPORT INFORMATION
  Report Type: 
  Country: None (occurrence: None)
  Receive Date: 20111214
  Receipt Date: 20111206
  Transmission Date: 20120403
  Serious: Yes (Hospitalization, Other)
  Sender: FDA-Public Use
  Company Number: AT-ASTRAZENECA-2011SE56123

PATIENT
  Age: 20476 Day
  Sex: Male

DRUGS (11)
  1. BISOPROLOL FUMARATE [Concomitant]
     Indication: MYOCARDIAL INFARCTION
     Route: 048
     Dates: end: 20110901
  2. ACECOMB [Concomitant]
     Indication: MYOCARDIAL INFARCTION
     Dosage: 10 MG/ 12.5 MG
     Route: 048
  3. NEUROFENAC [Concomitant]
     Indication: SPONDYLOARTHROPATHY
     Route: 048
  4. AMLODIPINE GENERICUM [Concomitant]
     Indication: HYPERTENSION
     Route: 048
     Dates: end: 20110901
  5. XEFO [Concomitant]
     Indication: SPONDYLOARTHROPATHY
     Route: 048
  6. ASPIRIN [Concomitant]
     Indication: ARTERIOSCLEROSIS CORONARY ARTERY
     Route: 048
  7. SIMVASTATIN [Concomitant]
     Indication: ARTERIOSCLEROSIS CORONARY ARTERY
     Route: 048
  8. PANTOPRAZOLE SODIUM [Concomitant]
     Indication: PROPHYLAXIS AGAINST GASTROINTESTINAL ULCER
     Route: 048
  9. IRESSA [Suspect]
     Indication: BRONCHIAL NEOPLASM
     Route: 048
     Dates: start: 20110813
  10. TRITTICO RET [Concomitant]
     Indication: DEPRESSION
     Route: 048
  11. EFFEXOR XR [Concomitant]
     Indication: DEPRESSION
     Route: 048

REACTIONS (3)
  - OEDEMA PERIPHERAL [None]
  - HYPOTENSION [None]
  - WEIGHT INCREASED [None]
